FAERS Safety Report 21560167 (Version 1)
Quarter: 2022Q4

REPORT INFORMATION
  Report Type: Spontaneous
  Country: US (occurrence: US)
  Receive Date: 20221107
  Receipt Date: 20221107
  Transmission Date: 20230113
  Serious: No
  Sender: FDA-Public Use
  Company Number: US-OTSUKA-2021_042304

PATIENT
  Age: 24 Year
  Sex: Female
  Weight: 93.6 kg

DRUGS (2)
  1. NUEDEXTA [Suspect]
     Active Substance: DEXTROMETHORPHAN HYDROBROMIDE\QUINIDINE SULFATE
     Indication: Affect lability
     Dosage: 1 DF ((20/10 MG) BID
     Route: 065
     Dates: start: 20211126, end: 20211126
  2. NUEDEXTA [Suspect]
     Active Substance: DEXTROMETHORPHAN HYDROBROMIDE\QUINIDINE SULFATE
     Indication: Craniocerebral injury
     Dosage: 1 UNK (20/10 MG)
     Route: 065
     Dates: start: 20211125

REACTIONS (4)
  - Abnormal behaviour [Recovered/Resolved with Sequelae]
  - Anhedonia [Unknown]
  - Nausea [Unknown]
  - Dizziness [Unknown]

NARRATIVE: CASE EVENT DATE: 20211125
